FAERS Safety Report 12230474 (Version 7)
Quarter: 2016Q2

REPORT INFORMATION
  Report Type: Spontaneous
  Country: GB (occurrence: GB)
  Receive Date: 20160401
  Receipt Date: 20160630
  Transmission Date: 20160815
  Serious: Yes (Hospitalization, Other)
  Sender: FDA-Public Use
  Company Number: GB-PFIZER INC-2016176640

PATIENT
  Age: 55 Year
  Sex: Male

DRUGS (18)
  1. ZALTRAP [Suspect]
     Active Substance: ZIV-AFLIBERCEPT
     Dosage: UNK, CYCLIC
     Route: 065
     Dates: start: 20160525, end: 20160525
  2. NEULASTA [Suspect]
     Active Substance: PEGFILGRASTIM
     Dosage: UNK
     Route: 065
  3. LEUCOVORIN /00566701/ [Suspect]
     Active Substance: LEUCOVORIN
     Dosage: UNK, CYCLIC
     Route: 041
  4. ZALTRAP [Suspect]
     Active Substance: ZIV-AFLIBERCEPT
     Dosage: 316 MG, CYCLIC
     Route: 065
     Dates: start: 20160203, end: 20160203
  5. CALCIUM FOLINATE [Suspect]
     Active Substance: LEUCOVORIN CALCIUM
     Dosage: CYCLIC
     Route: 041
  6. ZALTRAP [Suspect]
     Active Substance: ZIV-AFLIBERCEPT
     Dosage: 316 MG, CYCLIC (INFUSION)
     Route: 065
  7. FLUOROURACIL. [Suspect]
     Active Substance: FLUOROURACIL
     Dosage: CYCLIC
     Route: 040
  8. ZALTRAP [Suspect]
     Active Substance: ZIV-AFLIBERCEPT
     Dosage: 316 MG, CYCLIC
     Route: 065
     Dates: start: 20160203, end: 20160203
  9. ZALTRAP [Suspect]
     Active Substance: ZIV-AFLIBERCEPT
     Dosage: 316 MG, CYCLIC
     Route: 065
     Dates: start: 20160302, end: 20160302
  10. ZALTRAP [Suspect]
     Active Substance: ZIV-AFLIBERCEPT
     Dosage: 316 MG, CYCLIC (INFUSION)
     Route: 065
     Dates: start: 20160120, end: 20160120
  11. ZALTRAP [Suspect]
     Active Substance: ZIV-AFLIBERCEPT
     Dosage: 316 MG, CYCLIC
     Route: 065
     Dates: start: 20160302, end: 20160302
  12. IRINOTECAN HCL [Suspect]
     Active Substance: IRINOTECAN HYDROCHLORIDE
     Dosage: UNK, CYCLIC
     Route: 041
  13. ZALTRAP [Suspect]
     Active Substance: ZIV-AFLIBERCEPT
     Dosage: UNK
     Dates: start: 20160330
  14. ZALTRAP [Suspect]
     Active Substance: ZIV-AFLIBERCEPT
     Dosage: UNK, CYCLIC
     Route: 065
     Dates: start: 20160511, end: 20160511
  15. ZALTRAP [Suspect]
     Active Substance: ZIV-AFLIBERCEPT
     Dosage: UNK
  16. ZALTRAP [Suspect]
     Active Substance: ZIV-AFLIBERCEPT
     Dosage: 316 MG, CYCLIC (INFUSION)
     Route: 065
  17. ZALTRAP [Suspect]
     Active Substance: ZIV-AFLIBERCEPT
     Dosage: 316 MG, CYCLIC (INFUSION)
     Route: 065
     Dates: start: 20160120, end: 20160120
  18. ZALTRAP [Suspect]
     Active Substance: ZIV-AFLIBERCEPT
     Dosage: UNK

REACTIONS (18)
  - Arthralgia [Unknown]
  - Neuropathy peripheral [Unknown]
  - Alopecia [Unknown]
  - Dysgeusia [Unknown]
  - Dyspepsia [Unknown]
  - Paraesthesia mucosal [Unknown]
  - Oral herpes [Unknown]
  - Paraesthesia oral [Unknown]
  - Lip dry [Unknown]
  - Gingival pain [Unknown]
  - Fatigue [Not Recovered/Not Resolved]
  - Lethargy [Unknown]
  - Diarrhoea [Recovered/Resolved]
  - Oral pain [Unknown]
  - Fatigue [Unknown]
  - Pneumonia [Unknown]
  - Dry skin [Unknown]
  - Abdominal pain upper [Unknown]
